FAERS Safety Report 24015632 (Version 1)
Quarter: 2024Q2

REPORT INFORMATION
  Report Type: Spontaneous
  Country: US (occurrence: US)
  Receive Date: 20240626
  Receipt Date: 20240626
  Transmission Date: 20240716
  Serious: Yes (Other)
  Sender: FDA-Public Use
  Company Number: US-JNJFOC-20240658989

PATIENT
  Age: 65 Year
  Sex: Female

DRUGS (3)
  1. SIMPONI ARIA [Suspect]
     Active Substance: GOLIMUMAB
     Indication: Psoriatic arthropathy
     Route: 041
  2. CHILDREN^S BENADRYL DYE FREE ALLERGY [Concomitant]
     Indication: Drug hypersensitivity
     Route: 065
  3. PROLIA [Concomitant]
     Active Substance: DENOSUMAB
     Indication: Bone disorder

REACTIONS (5)
  - Eye operation [Unknown]
  - COVID-19 [Unknown]
  - Tooth fracture [Unknown]
  - Dental caries [Unknown]
  - Gingival disorder [Unknown]

NARRATIVE: CASE EVENT DATE: 20240101
